FAERS Safety Report 5867664-7 (Version None)
Quarter: 2008Q3

REPORT INFORMATION
  Report Type: 
  Country: None (occurrence: None)
  Receive Date: 20080902
  Receipt Date: 20071205
  Transmission Date: 20090109
  Serious: No
  Sender: FDA-Public Use
  Company Number: US-ABBOTT-07P-163-0428050-00

PATIENT
  Sex: Female

DRUGS (1)
  1. DEPAKOTE ER [Suspect]
     Indication: MIGRAINE
     Route: 048
     Dates: start: 20040101

REACTIONS (3)
  - EAR PAIN [None]
  - ERYTHEMA [None]
  - FLUSHING [None]
